FAERS Safety Report 8501929-5 (Version None)
Quarter: 2012Q3

REPORT INFORMATION
  Report Type: 
  Country: None (occurrence: None)
  Receive Date: 20120711
  Receipt Date: 20120707
  Transmission Date: 20120928
  Serious: Yes (Death, Hospitalization, Other)
  Sender: FDA-Public Use
  Company Number: PHHY2012MX052118

PATIENT
  Sex: Female

DRUGS (6)
  1. OMEPRAZOLE [Concomitant]
     Indication: GASTRITIS
     Dosage: 2 DF, DIALY
     Dates: start: 20000101
  2. ATROVENT [Concomitant]
     Dosage: 1 DF, UNK
  3. VERAPAMIL [Concomitant]
     Indication: CARDIAC DISORDER
     Dosage: 40 MG, UNK
  4. FLUTICASONE PROPIONATE/SALMETEROL [Concomitant]
     Indication: BRONCHIAL DISORDER
     Dosage: 2 DF, UNK
  5. SPIRIVA [Concomitant]
     Indication: BRONCHIAL DISORDER
     Dosage: 1 DF, DAILY
  6. ZOLEDRONOC ACID [Suspect]
     Indication: OSTEOPOROSIS
     Dosage: 5 MG, YEARLY
     Route: 042
     Dates: start: 20060101

REACTIONS (8)
  - CARDIAC FAILURE [None]
  - GASTROINTESTINAL HAEMORRHAGE [None]
  - CARDIOPULMONARY FAILURE [None]
  - EMPHYSEMA [None]
  - ANAEMIA [None]
  - RESPIRATORY FAILURE [None]
  - WRIST FRACTURE [None]
  - ABDOMINAL PAIN UPPER [None]
